FAERS Safety Report 4805834-7 (Version None)
Quarter: 2005Q4

REPORT INFORMATION
  Report Type: 
  Country: None (occurrence: None)
  Receive Date: 20051021
  Receipt Date: 20051007
  Transmission Date: 20060501
  Serious: Yes (Death)
  Sender: FDA-Public Use
  Company Number: FR-JNJFOC-20050804574

PATIENT
  Sex: Male

DRUGS (7)
  1. DURAGESIC-100 [Suspect]
     Indication: CANCER PAIN
     Route: 062
  2. DI-ANTALVIC [Concomitant]
  3. DI-ANTALVIC [Concomitant]
  4. LOVENOX [Concomitant]
     Route: 050
  5. SOLU-MEDROL [Concomitant]
  6. CITALOPRAM HYDROBROMIDE [Concomitant]
  7. ENANTONE [Concomitant]

REACTIONS (2)
  - MALIGNANT NEOPLASM PROGRESSION [None]
  - TREMOR [None]
